FAERS Safety Report 7300174-9 (Version None)
Quarter: 2011Q1

REPORT INFORMATION
  Report Type: 
  Country: None (occurrence: None)
  Receive Date: 20110217
  Receipt Date: 20110207
  Transmission Date: 20110831
  Serious: Yes (Hospitalization, Other)
  Sender: FDA-Public Use
  Company Number: US-BIOGENIDEC-2010BI044911

PATIENT
  Age: 61 Year
  Sex: Female
  Weight: 103 kg

DRUGS (8)
  1. KEPPRA [Concomitant]
     Route: 048
  2. LIORESAL [Concomitant]
     Route: 048
  3. PEPCID [Concomitant]
     Route: 048
  4. COUMADIN [Concomitant]
     Indication: THROMBOSIS PROPHYLAXIS
     Route: 048
  5. LOPRESSOR [Concomitant]
     Route: 048
  6. NORVASC [Concomitant]
     Route: 048
  7. AVONEX [Suspect]
     Indication: MULTIPLE SCLEROSIS
     Route: 030
     Dates: start: 20090301
  8. ZOCOR [Concomitant]
     Route: 048

REACTIONS (5)
  - URINARY TRACT INFECTION [None]
  - ENCEPHALOPATHY [None]
  - RESPIRATORY FAILURE [None]
  - PNEUMONIA [None]
  - DEEP VEIN THROMBOSIS [None]
